FAERS Safety Report 22911498 (Version 2)
Quarter: 2023Q4

REPORT INFORMATION
  Report Type: Spontaneous
  Country: JP (occurrence: JP)
  Receive Date: 20230906
  Receipt Date: 20231026
  Transmission Date: 20240109
  Serious: Yes (Death, Other)
  Sender: FDA-Public Use
  Company Number: JP-NBI-BJ202314217

PATIENT

DRUGS (1)
  1. DABIGATRAN ETEXILATE MESYLATE [Suspect]
     Active Substance: DABIGATRAN ETEXILATE MESYLATE
     Indication: Product used for unknown indication
     Route: 065

REACTIONS (3)
  - Haemorrhage [Fatal]
  - Colitis ischaemic [Unknown]
  - Sepsis [Unknown]

NARRATIVE: CASE EVENT DATE: 20230818
